FAERS Safety Report 6635704-3 (Version None)
Quarter: 2010Q1

REPORT INFORMATION
  Report Type: 
  Country: None (occurrence: None)
  Receive Date: 20100312
  Receipt Date: 20100312
  Transmission Date: 20100710
  Serious: Yes (Hospitalization)
  Sender: FDA-Public Use
  Company Number: None

PATIENT
  Age: 61 Year
  Sex: Male
  Weight: 81.1 kg

DRUGS (2)
  1. METHYLPREDNISOLONE [Suspect]
     Indication: BACK PAIN
     Dosage: 4 MG OTHER PO
     Route: 048
     Dates: start: 20100302, end: 20100308
  2. METHYLPREDNISOLONE [Suspect]
     Indication: PAIN
     Dosage: 4 MG OTHER PO
     Route: 048
     Dates: start: 20100302, end: 20100308

REACTIONS (1)
  - RASH MACULO-PAPULAR [None]
